FAERS Safety Report 10485071 (Version 2)
Quarter: 2015Q1

REPORT INFORMATION
  Report Type: Other
  Country: PL (occurrence: PL)
  Receive Date: 20140930
  Receipt Date: 20150330
  Transmission Date: 20150720
  Serious: Yes (Other)
  Sender: FDA-Public Use
  Company Number: PL-PURDUE-DEU-2014-0015454

PATIENT
  Sex: Male

DRUGS (11)
  1. NON-PMN THEOPHYLLINE [Suspect]
     Active Substance: THEOPHYLLINE ANHYDROUS
     Indication: BRADYCARDIA
     Dosage: UNK
     Route: 051
  2. PARACETAMOL [Concomitant]
     Active Substance: ACETAMINOPHEN
  3. TACROLIMUS. [Concomitant]
     Active Substance: TACROLIMUS
     Indication: IMMUNOSUPPRESSANT DRUG THERAPY
  4. STEROIDS [Concomitant]
     Active Substance: UNSPECIFIED INGREDIENT
     Indication: IMMUNOSUPPRESSANT DRUG THERAPY
  5. METOCLOPRAMIDE. [Interacting]
     Active Substance: METOCLOPRAMIDE
     Indication: PROCEDURAL NAUSEA
     Dosage: 20 MG, DAILY
     Route: 051
  6. METOCLOPRAMIDE. [Interacting]
     Active Substance: METOCLOPRAMIDE
     Indication: PROCEDURAL VOMITING
  7. MAGNESIUM [Concomitant]
     Active Substance: MAGNESIUM
  8. FUROSEMIDE. [Concomitant]
     Active Substance: FUROSEMIDE
  9. MYCOPHENOLATE MOFETIL. [Concomitant]
     Active Substance: MYCOPHENOLATE MOFETIL
     Indication: IMMUNOSUPPRESSANT DRUG THERAPY
  10. OMEPRAZOLE. [Concomitant]
     Active Substance: OMEPRAZOLE
  11. KALDYUM [Concomitant]
     Active Substance: POTASSIUM CHLORIDE

REACTIONS (3)
  - Generalised tonic-clonic seizure [Recovered/Resolved]
  - Drug interaction [Recovered/Resolved]
  - Overdose [Recovered/Resolved]
